FAERS Safety Report 5081904-6 (Version None)
Quarter: 2006Q3

REPORT INFORMATION
  Report Type: 
  Country: None (occurrence: None)
  Receive Date: 20060816
  Receipt Date: 20060719
  Transmission Date: 20061208
  Serious: Yes (Hospitalization)
  Sender: FDA-Public Use
  Company Number: FR-ABBOTT-06P-056-0338872-00

PATIENT
  Sex: Female
  Weight: 38 kg

DRUGS (1)
  1. HUMIRA [Suspect]
     Indication: RHEUMATOID ARTHRITIS
     Route: 058
     Dates: start: 20010102, end: 20050818

REACTIONS (1)
  - INTRACRANIAL HAEMANGIOMA [None]
